FAERS Safety Report 11031055 (Version 1)
Quarter: 2015Q2

REPORT INFORMATION
  Report Type: Spontaneous
  Country: US (occurrence: US)
  Receive Date: 20150415
  Receipt Date: 20150415
  Transmission Date: 20150821
  Serious: No
  Sender: FDA-Public Use
  Company Number: US-ASTRAZENECA-2014SE76344

PATIENT
  Sex: Male

DRUGS (2)
  1. PRILOSEC OTC [Suspect]
     Active Substance: OMEPRAZOLE MAGNESIUM
     Indication: DYSPEPSIA
     Route: 048
  2. NO DRUG NAME [Concomitant]
     Dosage: UNKNOWN

REACTIONS (4)
  - Labelled drug-drug interaction medication error [Unknown]
  - Inappropriate schedule of drug administration [Unknown]
  - Diarrhoea [Recovered/Resolved]
  - Incorrect drug administration duration [Unknown]
